FAERS Safety Report 6392128-4 (Version None)
Quarter: 2009Q4

REPORT INFORMATION
  Report Type: 
  Country: None (occurrence: None)
  Receive Date: 20091007
  Receipt Date: 20090924
  Transmission Date: 20100525
  Serious: Yes (Hospitalization)
  Sender: FDA-Public Use
  Company Number: DE-BRISTOL-MYERS SQUIBB COMPANY-14801674

PATIENT
  Age: 72 Year
  Sex: Male
  Weight: 82 kg

DRUGS (18)
  1. CETUXIMAB [Suspect]
     Indication: NON-SMALL CELL LUNG CANCER
     Dosage: RECENT INF- 21SEP09; 2MG/ML
     Route: 042
     Dates: start: 20090813
  2. CARBOPLATIN [Suspect]
     Indication: NON-SMALL CELL LUNG CANCER
     Dosage: RECENT INF- 21SEP09; 1DF- AUC5,5MG/M2
     Route: 042
     Dates: start: 20090813
  3. GEMCITABINE HCL [Suspect]
     Indication: NON-SMALL CELL LUNG CANCER
     Dosage: RECENT INF- 21SEP09
     Route: 042
     Dates: start: 20090813
  4. ACETYLSALICYLIC ACID [Concomitant]
  5. METOPROLOL TARTRATE [Concomitant]
  6. DIOVAN [Concomitant]
  7. ESIDRIX [Concomitant]
  8. SIMVASTATIN [Concomitant]
  9. PLAVIX [Concomitant]
  10. PANTOZOL [Concomitant]
  11. AMLODIPINE [Concomitant]
     Dosage: 00972401
  12. SPIRIVA [Concomitant]
  13. VIANI [Concomitant]
  14. MONO MACK [Concomitant]
  15. MOLSIDOMINE [Concomitant]
  16. NOVALGIN [Concomitant]
  17. LEVEMIR [Concomitant]
  18. HUMALOG [Concomitant]

REACTIONS (1)
  - ACUTE MYOCARDIAL INFARCTION [None]
